FAERS Safety Report 8301908-7 (Version None)
Quarter: 2012Q2

REPORT INFORMATION
  Report Type: 
  Country: None (occurrence: None)
  Receive Date: 20120418
  Receipt Date: 20120406
  Transmission Date: 20120825
  Serious: Yes (Hospitalization)
  Sender: FDA-Public Use
  Company Number: JPI-P-020490

PATIENT
  Age: 55 Year
  Sex: Male
  Weight: 106.1417 kg

DRUGS (11)
  1. ASPIRIN [Concomitant]
  2. RAMIPRIL [Concomitant]
  3. CARVEDILOL [Concomitant]
  4. DOFETILIDE [Concomitant]
  5. XYREM [Suspect]
     Indication: CATAPLEXY
     Dosage: 4.5 GM (2.25 GM,2 IN 1 D),ORAL, ORAL, 7.5 GM (3.75 GM,2 IN 1 D),ORAL )
     Route: 048
     Dates: start: 20120301, end: 20120301
  6. XYREM [Suspect]
     Indication: CATAPLEXY
     Dosage: 4.5 GM (2.25 GM,2 IN 1 D),ORAL, ORAL, 7.5 GM (3.75 GM,2 IN 1 D),ORAL )
     Route: 048
     Dates: start: 20120318
  7. XYREM [Suspect]
     Indication: CATAPLEXY
     Dosage: 4.5 GM (2.25 GM,2 IN 1 D),ORAL, ORAL, 7.5 GM (3.75 GM,2 IN 1 D),ORAL )
     Route: 048
     Dates: start: 20120301, end: 20120301
  8. XYREM [Suspect]
     Indication: CATAPLEXY
     Dosage: 4.5 GM (2.25 GM,2 IN 1 D),ORAL, ORAL, 7.5 GM (3.75 GM,2 IN 1 D),ORAL )
     Route: 048
     Dates: start: 20120316, end: 20120301
  9. DULOXETINE HYDROCHLORIDE [Concomitant]
  10. LACOSAMIDE [Concomitant]
  11. ARIPIPRAZOLE [Concomitant]

REACTIONS (6)
  - CONDITION AGGRAVATED [None]
  - CATAPLEXY [None]
  - SOMNOLENCE [None]
  - FATIGUE [None]
  - FALL [None]
  - TRANSIENT ISCHAEMIC ATTACK [None]
